FAERS Safety Report 5011235-1 (Version None)
Quarter: 2006Q2

REPORT INFORMATION
  Report Type: 
  Country: None (occurrence: None)
  Receive Date: 20060523
  Receipt Date: 20060523
  Transmission Date: 20061013
  Serious: No
  Sender: FDA-Public Use
  Company Number: None

PATIENT
  Age: 53 Year
  Sex: Male

DRUGS (3)
  1. POTASSIUM CHLORIDE [Suspect]
  2. TORSEMIDE [Suspect]
  3. ENALAPRIL [Suspect]

REACTIONS (2)
  - CARDIAC PACEMAKER MALFUNCTION [None]
  - HYPERKALAEMIA [None]
